FAERS Safety Report 9272047 (Version 1)
Quarter: 2013Q2

REPORT INFORMATION
  Report Type: Spontaneous
  Country: US (occurrence: US)
  Receive Date: 20130506
  Receipt Date: 20130506
  Transmission Date: 20140414
  Serious: Yes (Other)
  Sender: FDA-Public Use
  Company Number: PHHY2013US043383

PATIENT
  Age: 79 Year
  Sex: Female

DRUGS (6)
  1. ATORVASTATIN [Suspect]
  2. SPIRONOLACTONE [Suspect]
  3. ACETYLSALICYLIC ACID [Suspect]
  4. CIPROFLOXACIN [Suspect]
     Indication: URINARY TRACT INFECTION
  5. VANCOMYCIN [Suspect]
  6. TORADOL [Suspect]

REACTIONS (14)
  - Drug reaction with eosinophilia and systemic symptoms [Recovered/Resolved]
  - Skin plaque [Recovered/Resolved]
  - Rash erythematous [Recovered/Resolved]
  - Rash [Recovered/Resolved]
  - Rash maculo-papular [Recovered/Resolved]
  - Oliguria [Unknown]
  - Leukocytosis [Recovered/Resolved]
  - Cerebrovascular accident [Recovered/Resolved]
  - Cerebral ischaemia [Recovered/Resolved]
  - Somnolence [Recovered/Resolved]
  - Delirium [Recovered/Resolved]
  - VIIth nerve paralysis [Recovered/Resolved]
  - Dysarthria [Recovered/Resolved]
  - Pyrexia [Recovered/Resolved]
